FAERS Safety Report 9990135 (Version 1)
Quarter: 2014Q1

REPORT INFORMATION
  Report Type: Report from Study
  Country: US (occurrence: US)
  Receive Date: 20140310
  Receipt Date: 20140310
  Transmission Date: 20141002
  Serious: No
  Sender: FDA-Public Use
  Company Number: US-ABBVIE-13P-163-1136246-00

PATIENT
  Age: 62 Year
  Sex: Male

DRUGS (5)
  1. HUMIRA [Suspect]
     Indication: COLITIS ULCERATIVE
     Dates: start: 20130701
  2. ASACOL [Concomitant]
     Indication: COLITIS ULCERATIVE
     Dosage: 800 MG, 6 TABS DAILY
     Route: 048
  3. COUMADIN [Concomitant]
     Indication: THROMBOSIS
     Dosage: 5 MG DAILY
     Route: 048
  4. GLUCOSAMINE [Concomitant]
     Indication: ARTHRALGIA
     Route: 048
  5. AZASAN [Concomitant]
     Indication: PRODUCT USED FOR UNKNOWN INDICATION

REACTIONS (5)
  - Fluid retention [Not Recovered/Not Resolved]
  - Thirst [Not Recovered/Not Resolved]
  - Weight increased [Not Recovered/Not Resolved]
  - Muscle spasms [Not Recovered/Not Resolved]
  - Muscle spasms [Not Recovered/Not Resolved]
